FAERS Safety Report 15685091 (Version 6)
Quarter: 2019Q1

REPORT INFORMATION
  Report Type: Spontaneous
  Country: JP (occurrence: JP)
  Receive Date: 20181204
  Receipt Date: 20190327
  Transmission Date: 20190417
  Serious: Yes (Death, Other)
  Sender: FDA-Public Use
  Company Number: JP-ROCHE-2224908

PATIENT
  Age: 70 Year
  Sex: Male

DRUGS (7)
  1. CALFINA [Concomitant]
     Active Substance: ALFACALCIDOL
     Indication: HYPERPARATHYROIDISM SECONDARY
     Route: 048
     Dates: end: 20181018
  2. FOSRENOL [Concomitant]
     Active Substance: LANTHANUM CARBONATE
     Indication: HYPERPARATHYROIDISM SECONDARY
     Dosage: DAILY DOSE: 750 MG,8 HR
     Route: 048
  3. FEBURIC [Concomitant]
     Active Substance: FEBUXOSTAT
     Indication: HYPERURICAEMIA
     Route: 048
     Dates: start: 20181127
  4. ADALAT CC [Concomitant]
     Active Substance: NIFEDIPINE
     Indication: PRODUCT USED FOR UNKNOWN INDICATION
     Route: 048
  5. CALTAN [Concomitant]
     Active Substance: CALCIUM CARBONATE
     Indication: HYPERPARATHYROIDISM SECONDARY
     Dosage: DAILY DOSE: 6 GM,8 HR
     Route: 048
  6. BONVIVA [Suspect]
     Active Substance: IBANDRONATE SODIUM
     Indication: OSTEOPOROSIS
     Route: 042
     Dates: start: 20181002, end: 20181002
  7. LASIX [Concomitant]
     Active Substance: FUROSEMIDE
     Indication: PRODUCT USED FOR UNKNOWN INDICATION
     Route: 048
     Dates: start: 20181127

REACTIONS (9)
  - Papule [Unknown]
  - Purpura [Unknown]
  - Pleural effusion [Recovering/Resolving]
  - Haemoglobin decreased [Unknown]
  - Dyspnoea exertional [Unknown]
  - Pericardial effusion [Unknown]
  - Calciphylaxis [Unknown]
  - Cardiomegaly [Unknown]
  - Rash [Fatal]

NARRATIVE: CASE EVENT DATE: 20181005
